FAERS Safety Report 5026140-4 (Version None)
Quarter: 2006Q2

REPORT INFORMATION
  Report Type: 
  Country: None (occurrence: None)
  Receive Date: 20060612
  Receipt Date: 20060612
  Transmission Date: 20061013
  Serious: No
  Sender: FDA-Public Use
  Company Number: None

PATIENT
  Age: 45 Year
  Sex: Female
  Weight: 63.9572 kg

DRUGS (1)
  1. CELEXA [Suspect]
     Indication: PANIC DISORDER
     Dosage: 20 MG ONCE DAILY PO
     Route: 048
     Dates: start: 20020604, end: 20020704

REACTIONS (2)
  - ANORGASMIA [None]
  - LIBIDO DECREASED [None]
